FAERS Safety Report 7302170 (Version 2)
Quarter: 2014Q3

REPORT INFORMATION
  Report Type: Spontaneous
  Country: US (occurrence: None)
  Receive Date: 20100212
  Receipt Date: 20140714
  Transmission Date: 20150326
  Serious: No
  Sender: FDA-Public Use
  Company Number: 2010S1000549

PATIENT
  Age: 77 Year
  Sex: Male

DRUGS (6)
  1. AZMACORT (TRIAMCINOLONE ACETONIDE) [Concomitant]
  2. ALLOPURINOL (ALLOPURINOL) [Concomitant]
     Active Substance: ALLOPURINOL
  3. ATROVENT (IPRATROPIUM BROMIDE) [Concomitant]
  4. LASIX [Concomitant]
     Active Substance: FUROSEMIDE
  5. TAGAMET (CIMETIDINE) [Concomitant]
  6. PHOSPHO-SODA [Suspect]
     Active Substance: SODIUM PHOSPHATE, DIBASIC\SODIUM PHOSPHATE, MONOBASIC
     Indication: COLONOSCOPY
     Dosage: PO
     Route: 048
     Dates: start: 200009

REACTIONS (13)
  - Bundle branch block right [None]
  - Cardiac arrest [None]
  - Sexual dysfunction [None]
  - Respiratory arrest [None]
  - Renal disorder [None]
  - Renal failure [None]
  - Cholelithiasis [None]
  - Dyspnoea [None]
  - Acute myocardial infarction [None]
  - Tricuspid valve incompetence [None]
  - Diarrhoea [None]
  - Mitral valve incompetence [None]
  - Left ventricular hypertrophy [None]
